FAERS Safety Report 5462430-9 (Version None)
Quarter: 2007Q3

REPORT INFORMATION
  Report Type: 
  Country: None (occurrence: None)
  Receive Date: 20070814
  Receipt Date: 20070305
  Transmission Date: 20080115
  Serious: Yes (Other)
  Sender: FDA-Public Use
  Company Number: SP01154

PATIENT
  Age: 9 Year
  Sex: Female
  Weight: 27.2158 kg

DRUGS (4)
  1. COLAZAL [Suspect]
     Indication: COLITIS
     Dosage: 2250 MG (750 MG,3 IN 1 D), ORAL
     Route: 048
     Dates: start: 20070303
  2. INSULIN (HUMAN) [Concomitant]
  3. INSULIN LISPRO (HUMAN) [Concomitant]
  4. UNKNOWN STOMACH MEDICATION [Concomitant]

REACTIONS (1)
  - BLOOD GLUCOSE FLUCTUATION [None]
